FAERS Safety Report 5428833-3 (Version None)
Quarter: 2007Q3

REPORT INFORMATION
  Report Type: 
  Country: None (occurrence: None)
  Receive Date: 20070829
  Receipt Date: 20060914
  Transmission Date: 20080115
  Serious: No
  Sender: FDA-Public Use
  Company Number: A0620179A

PATIENT
  Sex: Female

DRUGS (2)
  1. ACYCLOVIR [Suspect]
     Indication: GENITAL HERPES
     Dosage: 200MG FIVE TIMES PER DAY
     Route: 048
  2. LYSINE [Concomitant]

REACTIONS (1)
  - PAIN OF SKIN [None]
